FAERS Safety Report 7246186-5 (Version None)
Quarter: 2011Q1

REPORT INFORMATION
  Report Type: 
  Country: None (occurrence: None)
  Receive Date: 20110126
  Receipt Date: 20110120
  Transmission Date: 20110831
  Serious: Yes (Death)
  Sender: FDA-Public Use
  Company Number: A0909256A

PATIENT
  Age: 89 Year
  Sex: Female

DRUGS (2)
  1. COREG CR [Suspect]
     Dates: start: 20050610
  2. ADVAIR [Suspect]
     Route: 055
     Dates: start: 20050610

REACTIONS (1)
  - DEATH [None]
